FAERS Safety Report 7971013 (Version 3)
Quarter: 2012Q4

REPORT INFORMATION
  Report Type: 
  Country: US (occurrence: US)
  Receive Date: 20110602
  Receipt Date: 20121115
  Transmission Date: 20130627
  Serious: Yes (Other)
  Sender: FDA-Public Use
  Company Number: US-ASTRAZENECA-2011SE32272

PATIENT
  Age: 60 Year
  Sex: Female

DRUGS (2)
  1. NEXIUM [Suspect]
     Route: 048
     Dates: start: 2001
  2. NEXIUM [Suspect]
     Route: 048
     Dates: start: 20070203

REACTIONS (3)
  - Upper limb fracture [Unknown]
  - Spinal disorder [Unknown]
  - Osteoporosis [Unknown]
